FAERS Safety Report 8597850-7 (Version None)
Quarter: 2012Q3

REPORT INFORMATION
  Report Type: 
  Country: None (occurrence: None)
  Receive Date: 20120816
  Receipt Date: 20120814
  Transmission Date: 20120928
  Serious: Yes (Other)
  Sender: FDA-Public Use
  Company Number: PHEH2010US03398

PATIENT
  Sex: Female
  Weight: 83.447 kg

DRUGS (23)
  1. PERIDEX [Concomitant]
  2. REVLIMID [Concomitant]
  3. LEXAPRO [Concomitant]
     Dosage: 10 MG, QD
  4. DECADRON PHOSPHATE [Concomitant]
  5. HYDROCHLOROTHIAZIDE [Concomitant]
  6. SIMVASTATIN [Concomitant]
  7. CLONAZEPAM [Concomitant]
  8. GLIPIZIDE [Concomitant]
  9. ACTOS [Concomitant]
  10. MELPHALAN HYDROCHLORIDE [Concomitant]
  11. LYRICA [Concomitant]
  12. DOXYCYCLINE HYCLATE [Concomitant]
  13. ZOMETA [Suspect]
     Indication: MULTIPLE MYELOMA
     Dosage: 4 MG, QMO
     Route: 042
     Dates: start: 20070501, end: 20090101
  14. METOPROLOL TARTRATE [Concomitant]
  15. COUMADIN [Concomitant]
  16. LORAZEPAM [Concomitant]
     Dosage: 50 MG, UNK
  17. LIDOCAINE [Concomitant]
  18. VELCADE [Concomitant]
  19. NEURONTIN [Concomitant]
  20. EPOGEN [Concomitant]
  21. DEPO-MEDROL [Concomitant]
  22. OMEPRAZOLE [Concomitant]
  23. CYMBALTA [Concomitant]

REACTIONS (81)
  - SOFT TISSUE DISORDER [None]
  - CHEST PAIN [None]
  - GINGIVAL INFECTION [None]
  - HYDRONEPHROSIS [None]
  - RECTAL HAEMORRHAGE [None]
  - EXOSTOSIS [None]
  - FATIGUE [None]
  - MUSCLE SPASMS [None]
  - TINNITUS [None]
  - OSTEONECROSIS OF JAW [None]
  - PAIN [None]
  - DECREASED INTEREST [None]
  - OSTEOLYSIS [None]
  - HYPOAESTHESIA [None]
  - FLANK PAIN [None]
  - SEPSIS [None]
  - RENAL FAILURE CHRONIC [None]
  - HAEMOPTYSIS [None]
  - MELAENA [None]
  - OBSTRUCTIVE AIRWAYS DISORDER [None]
  - DRY EYE [None]
  - DIARRHOEA [None]
  - ANXIETY [None]
  - NEPHROLITHIASIS [None]
  - INFECTION [None]
  - ANAEMIA [None]
  - MONOCLONAL GAMMOPATHY [None]
  - CONJUNCTIVAL HAEMORRHAGE [None]
  - GASTROINTESTINAL HAEMORRHAGE [None]
  - DRY MOUTH [None]
  - MUSCULOSKELETAL CHEST PAIN [None]
  - EXPOSED BONE IN JAW [None]
  - PANIC ATTACK [None]
  - OSTEOPOROSIS [None]
  - PAIN IN JAW [None]
  - HAEMATOCHEZIA [None]
  - CELLULITIS [None]
  - BENIGN ANORECTAL NEOPLASM [None]
  - PETECHIAE [None]
  - DECREASED APPETITE [None]
  - PANCYTOPENIA [None]
  - ORAL CAVITY FISTULA [None]
  - TYPE 2 DIABETES MELLITUS [None]
  - DEEP VEIN THROMBOSIS [None]
  - GENERAL PHYSICAL HEALTH DETERIORATION [None]
  - FACET JOINT SYNDROME [None]
  - OBESITY [None]
  - OESOPHAGITIS [None]
  - DYSPNOEA [None]
  - PAIN IN EXTREMITY [None]
  - BONE LOSS [None]
  - IMPAIRED HEALING [None]
  - SPINAL OSTEOARTHRITIS [None]
  - HAEMATURIA [None]
  - HYPOVOLAEMIA [None]
  - INTERVERTEBRAL DISC DEGENERATION [None]
  - PSORIASIS [None]
  - DIVERTICULUM INTESTINAL [None]
  - DYSPEPSIA [None]
  - PULMONARY EMBOLISM [None]
  - SINUS TACHYCARDIA [None]
  - NEUROPATHY PERIPHERAL [None]
  - INTERVERTEBRAL DISC PROTRUSION [None]
  - GOUT [None]
  - ANORECTAL DISORDER [None]
  - GASTROINTESTINAL DISORDER [None]
  - CONSTIPATION [None]
  - MYALGIA [None]
  - HYPOKALAEMIA [None]
  - PANCREATIC CALCIFICATION [None]
  - PARAESTHESIA [None]
  - BACK PAIN [None]
  - BLOOD CHOLESTEROL INCREASED [None]
  - CALCULUS BLADDER [None]
  - RENAL COLIC [None]
  - HEPATITIS C [None]
  - EMBOLISM VENOUS [None]
  - BALANCE DISORDER [None]
  - ABDOMINAL PAIN [None]
  - GASTROOESOPHAGEAL REFLUX DISEASE [None]
  - FISTULA DISCHARGE [None]
